FAERS Safety Report 17932210 (Version 1)
Quarter: 2020Q2

REPORT INFORMATION
  Report Type: Report from Study
  Country: US (occurrence: US)
  Receive Date: 20200623
  Receipt Date: 20200623
  Transmission Date: 20200714
  Serious: Yes (Death)
  Sender: FDA-Public Use
  Company Number: US-ACTELION-A-NJ2019-189313

PATIENT
  Age: 48 Year
  Sex: Female

DRUGS (3)
  1. REMODULIN [Suspect]
     Active Substance: TREPROSTINIL
     Indication: PRODUCT USED FOR UNKNOWN INDICATION
     Route: 065
  2. OXYGEN. [Concomitant]
     Active Substance: OXYGEN
  3. OPSUMIT [Suspect]
     Active Substance: MACITENTAN
     Indication: PULMONARY ARTERIAL HYPERTENSION
     Dosage: 10 MG, QD
     Route: 048
     Dates: start: 20180416, end: 20200509

REACTIONS (5)
  - Dyspnoea [Unknown]
  - Dyspnoea exertional [Not Recovered/Not Resolved]
  - Malaise [Unknown]
  - Death [Fatal]
  - Scleroderma [Not Recovered/Not Resolved]

NARRATIVE: CASE EVENT DATE: 20191215
